FAERS Safety Report 15051400 (Version 1)
Quarter: 2018Q2

REPORT INFORMATION
  Report Type: Report from Study
  Country: SE (occurrence: SE)
  Receive Date: 20180622
  Receipt Date: 20180622
  Transmission Date: 20180711
  Serious: Yes (Hospitalization, Other)
  Sender: FDA-Public Use
  Company Number: SE-SA-2017SA008314

PATIENT
  Age: 35 Year
  Sex: Male

DRUGS (2)
  1. ALEMTUZUMAB [Suspect]
     Active Substance: ALEMTUZUMAB
     Dosage: 12 MG,QD
     Route: 042
     Dates: start: 20151109, end: 20151113
  2. ALEMTUZUMAB [Suspect]
     Active Substance: ALEMTUZUMAB
     Indication: MULTIPLE SCLEROSIS RELAPSE
     Dosage: 12 MG,QD
     Route: 042
     Dates: start: 20161114, end: 20161116

REACTIONS (6)
  - Headache [Recovered/Resolved]
  - Headache [Recovered/Resolved]
  - Febrile neutropenia [Recovered/Resolved]
  - Rhinorrhoea [Recovered/Resolved]
  - Basedow^s disease [Recovered/Resolved with Sequelae]
  - Dyspnoea [Recovered/Resolved]

NARRATIVE: CASE EVENT DATE: 201611
